FAERS Safety Report 7905745-4 (Version None)
Quarter: 2011Q4

REPORT INFORMATION
  Report Type: 
  Country: None (occurrence: None)
  Receive Date: 20111108
  Receipt Date: 20111020
  Transmission Date: 20120403
  Serious: Yes (Life-Threatening, Hospitalization, Other)
  Sender: FDA-Public Use
  Company Number: ACO_27257_2011

PATIENT
  Age: 68 Year
  Sex: Male

DRUGS (12)
  1. SELEN /00075001/ (SELENIUM) [Concomitant]
  2. PROSTAGUTT (POPULUS SPP.EXTRACT,SERENOA REPENS EXTRACT, URTICA SPP.EXT [Concomitant]
  3. CALCICARE (CALCIUM GLUBIONATE, COLECALCIFEROL) [Concomitant]
  4. VASO-LOGES (HOMOCYSTEINE THIOLACTONE) [Concomitant]
  5. VIGANTOLETTEN (COLECALCIFEROL) [Concomitant]
  6. VITAMIN B-12 [Concomitant]
  7. ZINKOROTAT (ZINC OROTATE) [Concomitant]
  8. VITAMIN C /00008001/ (ASCORBIC ACID) [Concomitant]
  9. L-CARN (LEVOCARNITINE) [Concomitant]
  10. COENZYME Q10 [Concomitant]
  11. AMPYRA [Suspect]
     Indication: GAIT DISTURBANCE
     Dosage: ORAL
     Route: 048
     Dates: start: 20110901
  12. FOSAVANCE (ALENDRONATE SODIUM, COLECALCIFEROL) [Concomitant]

REACTIONS (2)
  - CONVULSION [None]
  - VENTRICULAR FIBRILLATION [None]
